FAERS Safety Report 17155099 (Version 2)
Quarter: 2020Q1

REPORT INFORMATION
  Report Type: Report from Study
  Country: US (occurrence: US)
  Receive Date: 20191214
  Receipt Date: 20200204
  Transmission Date: 20200409
  Serious: No
  Sender: FDA-Public Use
  Company Number: NVSC2019US015809

PATIENT
  Sex: Male

DRUGS (2)
  1. AFINITOR DISPERZ [Suspect]
     Active Substance: EVEROLIMUS
     Indication: SEIZURE
     Dosage: 10 MG, QD
     Route: 048
     Dates: start: 20190624
  2. AFINITOR DISPERZ [Suspect]
     Active Substance: EVEROLIMUS
     Dosage: 5 MG (EVERY OTHER DAY)
     Route: 048
     Dates: start: 20191001

REACTIONS (2)
  - Glossodynia [Not Recovered/Not Resolved]
  - Stomatitis [Not Recovered/Not Resolved]
